FAERS Safety Report 11292103 (Version 2)
Quarter: 2015Q3

REPORT INFORMATION
  Report Type: Spontaneous
  Country: GB (occurrence: GB)
  Receive Date: 20150722
  Receipt Date: 20150818
  Transmission Date: 20151125
  Serious: Yes (Death, Hospitalization)
  Sender: FDA-Public Use
  Company Number: GB-PFIZER INC-2015237549

PATIENT
  Sex: Male

DRUGS (4)
  1. VINBLASTINE [Suspect]
     Active Substance: VINBLASTINE
     Dosage: AT 11.5 MG (IN SODIUM CHLORIDE 0.9% BP. CONTAINER TYPE/SIZE: 10MG/10ML)
  2. DACARBAZINE. [Suspect]
     Active Substance: DACARBAZINE
     Dosage: AT 720 MG (IN SODIUM CHLORIDE 0.9% BP. CONTAINER TYPE/SIZE: 1000MG)
  3. DOXORUBICIN HCL [Suspect]
     Active Substance: DOXORUBICIN HYDROCHLORIDE
     Dosage: AT 48 MG (CONTAINER TYPE/SIZE: 200MG/200ML)
  4. BLEOMYCIN [Suspect]
     Active Substance: BLEOMYCIN SULFATE
     Dosage: AT 19000 IU (IN SODIUM CHLORIDE 0.9% BP. CONTAINER TYPE/SIZE: 15000 IU)

REACTIONS (5)
  - Malaise [Not Recovered/Not Resolved]
  - Abdominal pain upper [Not Recovered/Not Resolved]
  - Chest pain [Not Recovered/Not Resolved]
  - Death [Fatal]
  - Feeling hot [Not Recovered/Not Resolved]
